FAERS Safety Report 6391305-6 (Version None)
Quarter: 2009Q4

REPORT INFORMATION
  Report Type: 
  Country: None (occurrence: None)
  Receive Date: 20091007
  Receipt Date: 20090923
  Transmission Date: 20100525
  Serious: No
  Sender: FDA-Public Use
  Company Number: PHEH2009US10076

PATIENT
  Sex: Female

DRUGS (1)
  1. RECLAST [Suspect]
     Indication: OSTEOPOROSIS
     Dosage: UNK
     Dates: start: 20090827

REACTIONS (3)
  - BLOOD URINE PRESENT [None]
  - URINE ODOUR ABNORMAL [None]
  - VAGINAL HAEMORRHAGE [None]
